FAERS Safety Report 17046735 (Version 3)
Quarter: 2020Q1

REPORT INFORMATION
  Report Type: Report from Study
  Country: None (occurrence: US)
  Receive Date: 20191119
  Receipt Date: 20200226
  Transmission Date: 20200409
  Serious: Yes (Hospitalization)
  Sender: FDA-Public Use
  Company Number: US-ABBVIE-19K-163-3001680-00

PATIENT
  Age: 77 Year
  Sex: Female
  Weight: 68.1 kg

DRUGS (2)
  1. VENCLEXTA [Suspect]
     Active Substance: VENETOCLAX
     Indication: CHRONIC LYMPHOCYTIC LEUKAEMIA
     Route: 048
     Dates: start: 201706
  2. VENCLEXTA [Suspect]
     Active Substance: VENETOCLAX
     Route: 048
     Dates: start: 2019, end: 201912

REACTIONS (7)
  - Oedema peripheral [Recovering/Resolving]
  - Pneumonia [Recovered/Resolved]
  - Memory impairment [Not Recovered/Not Resolved]
  - Thrombosis [Not Recovered/Not Resolved]
  - Blood glucose increased [Recovered/Resolved]
  - Malaise [Recovering/Resolving]
  - Asthenia [Recovering/Resolving]

NARRATIVE: CASE EVENT DATE: 201911
